FAERS Safety Report 20628346 (Version 2)
Quarter: 2022Q2

REPORT INFORMATION
  Report Type: Spontaneous
  Country: IN (occurrence: IN)
  Receive Date: 20220323
  Receipt Date: 20220421
  Transmission Date: 20220721
  Serious: Yes (Other)
  Sender: FDA-Public Use
  Company Number: IN-GLENMARK PHARMACEUTICALS-2022GMK071195

PATIENT

DRUGS (1)
  1. AXITINIB [Suspect]
     Active Substance: AXITINIB
     Indication: Neoplasm malignant
     Dosage: 1 DOSAGE FORM, OD
     Route: 048
     Dates: end: 202112

REACTIONS (2)
  - Neoplasm malignant [Not Recovered/Not Resolved]
  - Drug ineffective [Unknown]
